FAERS Safety Report 11128442 (Version 4)
Quarter: 2015Q3

REPORT INFORMATION
  Report Type: Report from Study
  Country: US (occurrence: US)
  Receive Date: 20150521
  Receipt Date: 20150722
  Transmission Date: 20151125
  Serious: Yes (Hospitalization)
  Sender: FDA-Public Use
  Company Number: US-MERCK-1505USA006258

PATIENT
  Age: 77 Year
  Sex: Female

DRUGS (15)
  1. TRICOR [Concomitant]
     Active Substance: FENOFIBRATE
     Indication: HYPERLIPIDAEMIA
     Dosage: 145 MG, QD
     Route: 048
     Dates: start: 197806
  2. LOPRESSOR [Concomitant]
     Active Substance: METOPROLOL TARTRATE
     Indication: HYPERTENSION
     Dosage: 50MG DAILY DOSE, BID
     Route: 048
     Dates: start: 197806
  3. PEMBROLIZUMAB. [Suspect]
     Active Substance: PEMBROLIZUMAB
     Dosage: 2 MG/KG, Q3W
     Route: 042
     Dates: start: 20150515
  4. CLONAZEPAM. [Concomitant]
     Active Substance: CLONAZEPAM
     Indication: ANXIETY
     Dosage: 0.5MG DAILY DOSE, FREQUENCY:OTHER
     Route: 048
     Dates: start: 20140701
  5. CALCIUM (UNSPECIFIED) [Concomitant]
     Active Substance: CALCIUM
     Indication: ROUTINE HEALTH MAINTENANCE
     Dosage: STRENGHT AND TOTAL DAILY DOSE: 1 TABLET, QD
     Route: 048
     Dates: start: 200406
  6. LEXAPRO [Concomitant]
     Active Substance: ESCITALOPRAM OXALATE
     Indication: ANXIETY
     Dosage: 10 MG, QD
     Route: 048
     Dates: start: 200206, end: 20150507
  7. OMEGA-3 MARINE TRIGLYCERIDES [Concomitant]
     Active Substance: FISH OIL
     Indication: ROUTINE HEALTH MAINTENANCE
     Dosage: STRENGTH AND TOTAL DAILY DOSE: 1 TABLET, QD
     Route: 048
     Dates: start: 200406
  8. PEMBROLIZUMAB. [Suspect]
     Active Substance: PEMBROLIZUMAB
     Indication: NON-SMALL CELL LUNG CANCER
     Dosage: 2 MG/KG, Q3W
     Route: 042
     Dates: start: 20141209, end: 20150331
  9. MAGNESIUM OXIDE. [Concomitant]
     Active Substance: MAGNESIUM OXIDE
     Indication: ROUTINE HEALTH MAINTENANCE
     Dosage: 400MG DAILY DOSE, TID
     Route: 048
     Dates: start: 20121113
  10. PROTONIX [Concomitant]
     Active Substance: PANTOPRAZOLE SODIUM
     Indication: GASTROOESOPHAGEAL REFLUX DISEASE
     Dosage: STRENGTH AND TOTAL DAILY DOSE: 1 TABLET, QD
     Route: 048
     Dates: start: 200406
  11. PEMBROLIZUMAB. [Suspect]
     Active Substance: PEMBROLIZUMAB
     Dosage: 2 MG/KG, Q3W
     Route: 042
     Dates: start: 20150421, end: 20150421
  12. LEXAPRO [Concomitant]
     Active Substance: ESCITALOPRAM OXALATE
     Indication: DEPRESSION
     Dosage: 20MG DAILY DOSE, FREQUENCY: OTHER
     Route: 048
     Dates: start: 20150508
  13. LORAZEPAM. [Concomitant]
     Active Substance: LORAZEPAM
     Indication: ANXIETY
     Dosage: 0.5MG DAILY DOSE, BID
     Route: 048
     Dates: start: 20140701, end: 20150512
  14. LOVENOX [Concomitant]
     Active Substance: ENOXAPARIN SODIUM
     Indication: PULMONARY EMBOLISM
     Dosage: 60MG DAILY DOSE, BID
     Route: 048
     Dates: start: 20150314
  15. HYDROCHLOROTHIAZIDE (+) TRIAMTERENE [Concomitant]
     Indication: HYPERTENSION
     Dosage: 37.5 MG, QD
     Route: 048
     Dates: start: 201006

REACTIONS (1)
  - Pulmonary embolism [Recovering/Resolving]

NARRATIVE: CASE EVENT DATE: 20150512
